FAERS Safety Report 15814730 (Version 1)
Quarter: 2019Q1

REPORT INFORMATION
  Report Type: Spontaneous
  Country: US (occurrence: US)
  Receive Date: 20190111
  Receipt Date: 20190111
  Transmission Date: 20190417
  Serious: No
  Sender: FDA-Public Use
  Company Number: US-009507513-1901USA001943

PATIENT
  Age: 51 Year
  Sex: Male

DRUGS (7)
  1. STATIN (UNSPECIFIED) [Suspect]
     Active Substance: UNSPECIFIED INGREDIENT
  2. ZETIA [Suspect]
     Active Substance: EZETIMIBE
  3. LOPID [Suspect]
     Active Substance: GEMFIBROZIL
  4. ZOFRAN [Suspect]
     Active Substance: ONDANSETRON HYDROCHLORIDE
  5. METHOTREXATE. [Suspect]
     Active Substance: METHOTREXATE
  6. CELEBREX [Suspect]
     Active Substance: CELECOXIB
  7. PEPCID [Suspect]
     Active Substance: FAMOTIDINE

REACTIONS (1)
  - Drug hypersensitivity [Unknown]

NARRATIVE: CASE EVENT DATE: 20050419
